FAERS Safety Report 16255619 (Version 1)
Quarter: 2019Q2

REPORT INFORMATION
  Report Type: Spontaneous
  Country: US (occurrence: US)
  Receive Date: 20190430
  Receipt Date: 20190430
  Transmission Date: 20190711
  Serious: No
  Sender: FDA-Public Use
  Company Number: US-BAYER-2019-081821

PATIENT
  Sex: Female

DRUGS (1)
  1. GADAVIST [Suspect]
     Active Substance: GADOBUTROL
     Indication: IMAGING PROCEDURE
     Dosage: 0.1 ML/KG, ONCE
     Route: 042
     Dates: start: 201904, end: 201904

REACTIONS (1)
  - Urticaria [None]

NARRATIVE: CASE EVENT DATE: 201904
